FAERS Safety Report 10246451 (Version 1)
Quarter: 2014Q2

REPORT INFORMATION
  Report Type: Spontaneous
  Country: US (occurrence: US)
  Receive Date: 20140619
  Receipt Date: 20140619
  Transmission Date: 20141212
  Serious: No
  Sender: FDA-Public Use
  Company Number: US-PFIZER INC-2014168603

PATIENT
  Age: 37 Year
  Sex: Male
  Weight: 97.51 kg

DRUGS (2)
  1. EFFEXOR XR [Suspect]
     Indication: POST-TRAUMATIC STRESS DISORDER
     Dosage: 150 MG, DAILY
     Dates: start: 201403, end: 20140612
  2. EFFEXOR XR [Suspect]
     Indication: NIGHTMARE

REACTIONS (1)
  - Drug withdrawal syndrome [Not Recovered/Not Resolved]
